FAERS Safety Report 7743608-8 (Version None)
Quarter: 2011Q3

REPORT INFORMATION
  Report Type: 
  Country: None (occurrence: None)
  Receive Date: 20110909
  Receipt Date: 20110909
  Transmission Date: 20111222
  Serious: No
  Sender: FDA-Public Use
  Company Number: None

PATIENT
  Age: 64 Year
  Sex: Female
  Weight: 79.3795 kg

DRUGS (1)
  1. CYANOCOBALAMIN [Suspect]
     Indication: NEUROPATHY PERIPHERAL
     Dosage: 1 TABLET 1 DAILY BY MOUTH
     Route: 048
     Dates: start: 20110727

REACTIONS (5)
  - PRURITUS [None]
  - SWELLING FACE [None]
  - URTICARIA [None]
  - RASH [None]
  - EYE SWELLING [None]
